FAERS Safety Report 26212917 (Version 1)
Quarter: 2025Q4

REPORT INFORMATION
  Report Type: Spontaneous
  Country: US (occurrence: US)
  Receive Date: 20251230
  Receipt Date: 20251230
  Transmission Date: 20260118
  Serious: Yes (Other)
  Sender: PACIRA
  Company Number: US-ORG100016242-2025000516

PATIENT
  Age: 66 Year
  Sex: Male

DRUGS (1)
  1. EXPAREL [Suspect]
     Active Substance: BUPIVACAINE
     Indication: Surgery
     Dosage: NOT PROVIDED
     Dates: start: 20251218, end: 20251218

REACTIONS (5)
  - Haemodynamic instability [Recovering/Resolving]
  - Vasoplegia syndrome [Unknown]
  - Vascular resistance systemic decreased [Unknown]
  - Extrasystoles [Recovering/Resolving]
  - Mental status changes [Recovering/Resolving]

NARRATIVE: CASE EVENT DATE: 20251220
